FAERS Safety Report 18442930 (Version 2)
Quarter: 2020Q4

REPORT INFORMATION
  Report Type: Report from Study
  Country: US (occurrence: US)
  Receive Date: 20201030
  Receipt Date: 20201122
  Transmission Date: 20210114
  Serious: Yes (Other)
  Sender: FDA-Public Use
  Company Number: US-BEH-2020123109

PATIENT
  Age: 37 Year
  Sex: Male

DRUGS (1)
  1. HIZENTRA [Suspect]
     Active Substance: HUMAN IMMUNOGLOBULIN G
     Indication: CHRONIC INFLAMMATORY DEMYELINATING POLYRADICULONEUROPATHY
     Dosage: 26 GRAM, QW
     Route: 058
     Dates: start: 20200923

REACTIONS (4)
  - Arthralgia [Unknown]
  - Meningitis [Unknown]
  - Blood sodium abnormal [Unknown]
  - Headache [Unknown]

NARRATIVE: CASE EVENT DATE: 20200923
